FAERS Safety Report 10602470 (Version 1)
Quarter: 2014Q4

REPORT INFORMATION
  Report Type: Report from Study
  Country: CO (occurrence: CO)
  Receive Date: 20141124
  Receipt Date: 20141124
  Transmission Date: 20150529
  Serious: Yes (Death)
  Sender: FDA-Public Use
  Company Number: CO-ABBVIE-14K-036-1311608-00

PATIENT
  Age: 17 Year
  Sex: Female
  Weight: 70 kg

DRUGS (1)
  1. ZEMPLAR [Suspect]
     Active Substance: PARICALCITOL
     Indication: HYPERPARATHYROIDISM SECONDARY
     Route: 042
     Dates: start: 20141015, end: 20141024

REACTIONS (3)
  - Abdominal pain [Fatal]
  - Agitation [Fatal]
  - Hyperhidrosis [Fatal]

NARRATIVE: CASE EVENT DATE: 20141109
